FAERS Safety Report 7099128-X (Version None)
Quarter: 2010Q4

REPORT INFORMATION
  Report Type: 
  Country: None (occurrence: None)
  Receive Date: 20101112
  Receipt Date: 20101103
  Transmission Date: 20110411
  Serious: Yes (Hospitalization)
  Sender: FDA-Public Use
  Company Number: B0683042A

PATIENT
  Sex: Female

DRUGS (2)
  1. TYVERB [Suspect]
     Route: 048
     Dates: start: 20100101
  2. CAPECITABINE [Concomitant]
     Route: 065

REACTIONS (1)
  - DIARRHOEA HAEMORRHAGIC [None]
